FAERS Safety Report 16313631 (Version 1)
Quarter: 2019Q2

REPORT INFORMATION
  Report Type: Spontaneous
  Country: US (occurrence: US)
  Receive Date: 20190515
  Receipt Date: 20190515
  Transmission Date: 20190711
  Serious: Yes (Hospitalization, Other)
  Sender: FDA-Public Use
  Company Number: US-PFIZER INC-2019200383

PATIENT
  Age: 70 Year
  Sex: Male
  Weight: 79.83 kg

DRUGS (1)
  1. VIAGRA [Suspect]
     Active Substance: SILDENAFIL CITRATE
     Indication: PULMONARY HYPERTENSION
     Dosage: 120 MG, DAILY
     Route: 048
     Dates: start: 201812

REACTIONS (7)
  - Product use in unapproved indication [Unknown]
  - Abdominal discomfort [Unknown]
  - Product dose omission [Unknown]
  - Abdominal distension [Unknown]
  - Arrhythmia [Unknown]
  - Off label use [Unknown]
  - Dyspnoea [Unknown]

NARRATIVE: CASE EVENT DATE: 201812
